FAERS Safety Report 16700990 (Version 2)
Quarter: 2020Q2

REPORT INFORMATION
  Report Type: Other
  Country: DE (occurrence: DE)
  Receive Date: 20190814
  Receipt Date: 20200420
  Transmission Date: 20200713
  Serious: No
  Sender: FDA-Public Use
  Company Number: DE-LUPIN PHARMACEUTICALS INC.-2019-04763

PATIENT
  Age: 29 Year
  Sex: Female
  Weight: 75 kg

DRUGS (1)
  1. ZIPRASIDONE-HORMOSAN 80 MG HARTKAPSELN [Suspect]
     Active Substance: ZIPRASIDONE HYDROCHLORIDE
     Indication: AUTISM SPECTRUM DISORDER
     Dosage: 80 MILLIGRAM, QD
     Route: 048
     Dates: start: 201407, end: 201810

REACTIONS (3)
  - Hyperventilation [Recovered/Resolved]
  - Impaired work ability [Unknown]
  - Respiration abnormal [Recovered/Resolved]

NARRATIVE: CASE EVENT DATE: 201407
